FAERS Safety Report 24032316 (Version 2)
Quarter: 2024Q3

REPORT INFORMATION
  Report Type: Spontaneous
  Country: IL (occurrence: IL)
  Receive Date: 20240630
  Receipt Date: 20240703
  Transmission Date: 20241017
  Serious: No
  Sender: BLUEPRINT MEDICINES
  Company Number: IL-Neopharm Limited-SP-IL-2024-001286

PATIENT
  Age: 77 Year
  Sex: Female

DRUGS (1)
  1. AYVAKIT [Suspect]
     Active Substance: AVAPRITINIB
     Indication: Indolent systemic mastocytosis
     Route: 065
     Dates: start: 202405

REACTIONS (3)
  - Fatigue [Unknown]
  - Alopecia [Unknown]
  - Hot flush [Unknown]

NARRATIVE: CASE EVENT DATE: 20240601
